FAERS Safety Report 19039416 (Version 3)
Quarter: 2021Q2

REPORT INFORMATION
  Report Type: Spontaneous
  Country: US (occurrence: US)
  Receive Date: 20210322
  Receipt Date: 20210414
  Transmission Date: 20210717
  Serious: Yes (Death)
  Sender: FDA-Public Use
  Company Number: US-ROCHE-2795002

PATIENT
  Age: 79 Year
  Sex: Male
  Weight: 50.85 kg

DRUGS (2)
  1. ESBRIET [Suspect]
     Active Substance: PIRFENIDONE
     Indication: PRODUCT USED FOR UNKNOWN INDICATION
     Route: 048
     Dates: start: 202005
  2. ATIVAN [Concomitant]
     Active Substance: LORAZEPAM

REACTIONS (8)
  - Nervousness [Unknown]
  - Depression [Unknown]
  - Poor quality sleep [Unknown]
  - Anxiety [Unknown]
  - Muscle atrophy [Unknown]
  - Asthenia [Unknown]
  - Contusion [Unknown]
  - Death [Fatal]

NARRATIVE: CASE EVENT DATE: 20210117
